FAERS Safety Report 10392502 (Version 3)
Quarter: 2015Q3

REPORT INFORMATION
  Report Type: Spontaneous
  Country: US (occurrence: None)
  Receive Date: 20120817
  Receipt Date: 20150826
  Transmission Date: 20151125
  Serious: Yes (Life-Threatening, Hospitalization, Other)
  Sender: FDA-Public Use
  Company Number: ADR-2011-11547

PATIENT
  Age: 66 Year
  Sex: Female

DRUGS (5)
  1. ORAL BACLOFEN [Suspect]
     Active Substance: BACLOFEN
  2. BACLOFEN INTRATHECAL (BACLOFEN INJECTION) [Suspect]
     Active Substance: BACLOFEN
     Indication: BACK PAIN
  3. MORPHINE [Concomitant]
     Active Substance: MORPHINE
  4. LIORESAL [Suspect]
     Active Substance: BACLOFEN
     Dosage: ^TRIAL DOSE (50 MCG)^
  5. INTRAVENOUS BENZOS [Suspect]
     Active Substance: UNSPECIFIED INGREDIENT

REACTIONS (11)
  - Post procedural infection [None]
  - Pyrexia [None]
  - Loss of consciousness [None]
  - No therapeutic response [None]
  - Pain [None]
  - Patient-device incompatibility [None]
  - Tachycardia [None]
  - Medical device site infection [None]
  - Multi-organ failure [None]
  - Drug withdrawal syndrome [None]
  - Seizure [None]
